FAERS Safety Report 5789405-4 (Version None)
Quarter: 2008Q2

REPORT INFORMATION
  Report Type: 
  Country: None (occurrence: None)
  Receive Date: 20080626
  Receipt Date: 20080619
  Transmission Date: 20081010
  Serious: Yes (Life-Threatening, Hospitalization)
  Sender: FDA-Public Use
  Company Number: ES-AVENTIS-200813058EU

PATIENT
  Age: 75 Year
  Sex: Female

DRUGS (6)
  1. SEGURIL                            /00032601/ [Suspect]
     Route: 048
  2. CARVEDILOL [Suspect]
     Route: 048
  3. ALDACTONE [Suspect]
     Route: 048
  4. DIGOXIN [Suspect]
     Route: 048
     Dates: start: 20080310, end: 20080405
  5. COZAAR [Concomitant]
     Route: 048
  6. ISCOVER [Concomitant]
     Route: 048

REACTIONS (5)
  - BRADYCARDIA [None]
  - DRUG INTERACTION [None]
  - HYPERKALAEMIA [None]
  - RENAL FAILURE ACUTE [None]
  - THERAPEUTIC AGENT TOXICITY [None]
